FAERS Safety Report 9018327 (Version 1)
Quarter: 2013Q1

REPORT INFORMATION
  Report Type: Spontaneous
  Country: US (occurrence: None)
  Receive Date: 20130111
  Receipt Date: 20130111
  Transmission Date: 20140127
  Serious: Yes (Hospitalization)
  Sender: FDA-Public Use
  Company Number: None

PATIENT
  Age: 73 Year
  Sex: Female
  Weight: 60.5 kg

DRUGS (5)
  1. METHADONE [Suspect]
     Route: 048
  2. METHADONE [Suspect]
     Route: 048
  3. ZOFRAN [Concomitant]
  4. COLACE [Concomitant]
  5. VIT D [Concomitant]

REACTIONS (1)
  - Accidental overdose [None]
